FAERS Safety Report 10365614 (Version 3)
Quarter: 2014Q3

REPORT INFORMATION
  Report Type: Spontaneous
  Country: BR (occurrence: BR)
  Receive Date: 20140806
  Receipt Date: 20140829
  Transmission Date: 20150326
  Serious: Yes (Other)
  Sender: FDA-Public Use
  Company Number: BR-PFIZER INC-2014214983

PATIENT
  Age: 60 Year
  Sex: Male

DRUGS (1)
  1. VIAGRA [Suspect]
     Active Substance: SILDENAFIL CITRATE
     Indication: ERECTILE DYSFUNCTION
     Dosage: 50 MG, ONLY WHEN HE HAS SEXUAL INTERCOURSE
     Route: 048
     Dates: start: 2010

REACTIONS (12)
  - Deafness [Unknown]
  - Pain [Unknown]
  - Proctitis [Unknown]
  - Labyrinthitis [Unknown]
  - Prostatic specific antigen increased [Unknown]
  - Painful erection [Unknown]
  - Anorectal infection [Unknown]
  - Proctalgia [Unknown]
  - Gastrooesophageal reflux disease [Unknown]
  - Prostate cancer recurrent [Unknown]
  - Anorectal discomfort [Unknown]
  - Proctalgia [Unknown]

NARRATIVE: CASE EVENT DATE: 201101
